FAERS Safety Report 4621120-2 (Version None)
Quarter: 2005Q1

REPORT INFORMATION
  Report Type: 
  Country: None (occurrence: None)
  Receive Date: 20050328
  Receipt Date: 20050315
  Transmission Date: 20050727
  Serious: Yes (Hospitalization)
  Sender: FDA-Public Use
  Company Number: MK200503-0215-1

PATIENT
  Age: 48 Year
  Sex: Female

DRUGS (4)
  1. TOFRANIL TAB [Suspect]
     Dosage: 150MG, DAILY
     Dates: start: 20001114, end: 20001129
  2. SOLIAN STRENGTH [Suspect]
     Dosage: 500MG, DAILY
     Dates: start: 20000104
  3. HYPNOREX [Concomitant]
  4. TREVILOR [Concomitant]

REACTIONS (5)
  - ALANINE AMINOTRANSFERASE INCREASED [None]
  - ASPARTATE AMINOTRANSFERASE INCREASED [None]
  - BLOOD ALKALINE PHOSPHATASE INCREASED [None]
  - GAMMA-GLUTAMYLTRANSFERASE INCREASED [None]
  - HEPATIC FUNCTION ABNORMAL [None]
